FAERS Safety Report 7549728-5 (Version None)
Quarter: 2011Q2

REPORT INFORMATION
  Report Type: 
  Country: None (occurrence: None)
  Receive Date: 20110615
  Receipt Date: 20110610
  Transmission Date: 20111010
  Serious: Yes (Other)
  Sender: FDA-Public Use
  Company Number: BR-TEVA-282625ISR

PATIENT
  Sex: Female
  Weight: 76 kg

DRUGS (3)
  1. AMITRIPTYLINE HYDROCHLORIDE [Concomitant]
  2. COPAXONE [Suspect]
     Indication: MULTIPLE SCLEROSIS
     Dosage: 20 MILLIGRAM;
     Route: 058
     Dates: start: 20070328
  3. CARBAMAZEPINE [Concomitant]
     Indication: TRIGEMINAL NEURALGIA

REACTIONS (1)
  - FEELING COLD [None]
